FAERS Safety Report 10777437 (Version 6)
Quarter: 2019Q1

REPORT INFORMATION
  Report Type: Spontaneous
  Country: US (occurrence: US)
  Receive Date: 20150209
  Receipt Date: 20190117
  Transmission Date: 20190417
  Serious: Yes (Other)
  Sender: FDA-Public Use
  Company Number: US-PFIZER INC-2015048489

PATIENT
  Age: 70 Year
  Sex: Female
  Weight: 82 kg

DRUGS (7)
  1. LATANOPROST. [Suspect]
     Active Substance: LATANOPROST
     Indication: OPTIC NERVE DISORDER
  2. ATACAND HCT [Concomitant]
     Active Substance: CANDESARTAN CILEXETIL\HYDROCHLOROTHIAZIDE
     Indication: BLOOD PRESSURE ABNORMAL
     Dosage: UNK
  3. METOPROLOL ER [Concomitant]
     Active Substance: METOPROLOL SUCCINATE
     Dosage: 100 MG, DAILY
     Route: 048
  4. LATANOPROST. [Suspect]
     Active Substance: LATANOPROST
     Indication: GLAUCOMA
     Dosage: ONE DROP IN EACH EYE, AT BEDTIME
     Route: 047
     Dates: start: 2013
  5. GLYBURIDE. [Concomitant]
     Active Substance: GLYBURIDE
     Indication: DIABETES MELLITUS
     Dosage: UNK
  6. LATANOPROST. [Suspect]
     Active Substance: LATANOPROST
     Indication: RETINAL DETACHMENT
     Dosage: 2 GTT, 1X/DAY[ONE DROP IN EACH EYE AT BEDTIME]
     Route: 047
     Dates: end: 201407
  7. METFORMIN [Concomitant]
     Active Substance: METFORMIN HYDROCHLORIDE
     Indication: DIABETES MELLITUS
     Dosage: UNK

REACTIONS (8)
  - Foreign body sensation in eyes [Recovering/Resolving]
  - Herpes zoster [Unknown]
  - Pain [Unknown]
  - Eye irritation [Recovering/Resolving]
  - Abnormal sensation in eye [Recovering/Resolving]
  - Drug ineffective [Recovering/Resolving]
  - Body height decreased [Unknown]
  - Intraocular pressure increased [Unknown]
